FAERS Safety Report 6278365-8 (Version None)
Quarter: 2009Q3

REPORT INFORMATION
  Report Type: 
  Country: None (occurrence: None)
  Receive Date: 20090720
  Receipt Date: 20090720
  Transmission Date: 20100115
  Serious: Yes (Life-Threatening, Hospitalization)
  Sender: FDA-Public Use
  Company Number: None

PATIENT
  Age: 46 Year
  Sex: Male
  Weight: 122.4712 kg

DRUGS (1)
  1. XOLAIR [Suspect]
     Indication: ASTHMA
     Dosage: STANDARD DOSE EVEY 2 WEEKS IM
     Route: 030
     Dates: start: 20060815, end: 20090717

REACTIONS (3)
  - INFLUENZA LIKE ILLNESS [None]
  - RENAL CANCER [None]
  - RENAL FAILURE [None]
